FAERS Safety Report 14755107 (Version 1)
Quarter: 2018Q2

REPORT INFORMATION
  Report Type: Spontaneous
  Country: FR (occurrence: FR)
  Receive Date: 20180413
  Receipt Date: 20180413
  Transmission Date: 20180711
  Serious: Yes (Other)
  Sender: FDA-Public Use
  Company Number: FR-009507513-1708FRA000944

PATIENT
  Age: 66 Year
  Sex: Female

DRUGS (5)
  1. SINEMET [Suspect]
     Active Substance: CARBIDOPA\LEVODOPA
     Indication: PARKINSON^S DISEASE
     Dosage: UNK
     Route: 048
  2. SINEMET [Suspect]
     Active Substance: CARBIDOPA\LEVODOPA
     Dosage: UNK
     Route: 048
     Dates: start: 20170731
  3. SINEMET L.P. [Suspect]
     Active Substance: CARBIDOPA\LEVODOPA
     Dosage: 5 TABLETS DAILY AT 6:00, 11:00, 14:00 AND 21:00
     Route: 048
     Dates: start: 201804
  4. SINEMET L.P. [Suspect]
     Active Substance: CARBIDOPA\LEVODOPA
     Indication: PARKINSON^S DISEASE
     Dosage: 1 TABLET (FORMULATION 200/50 MG), EVERY 4 HOURS
     Route: 048
     Dates: start: 201706
  5. SINEMET L.P. [Suspect]
     Active Substance: CARBIDOPA\LEVODOPA
     Indication: PARKINSON^S DISEASE
     Dosage: UNK
     Route: 048

REACTIONS (5)
  - Tremor [Unknown]
  - Depressed mood [Unknown]
  - Lung infection [Not Recovered/Not Resolved]
  - Drug ineffective [Unknown]
  - Gait inability [Unknown]

NARRATIVE: CASE EVENT DATE: 2017
